FAERS Safety Report 18898461 (Version 1)
Quarter: 2021Q1

REPORT INFORMATION
  Report Type: Spontaneous
  Country: US (occurrence: US)
  Receive Date: 20210216
  Receipt Date: 20210216
  Transmission Date: 20210420
  Serious: Yes (Hospitalization)
  Sender: FDA-Public Use
  Company Number: None

PATIENT
  Sex: Female
  Weight: 79.4 kg

DRUGS (2)
  1. TEMOZOLOMIDE. [Suspect]
     Active Substance: TEMOZOLOMIDE
  2. CAPECITABINE. [Suspect]
     Active Substance: CAPECITABINE

REACTIONS (2)
  - Osteolysis [None]
  - Arthralgia [None]

NARRATIVE: CASE EVENT DATE: 20201114
